FAERS Safety Report 22950691 (Version 2)
Quarter: 2023Q4

REPORT INFORMATION
  Report Type: Spontaneous
  Country: DE (occurrence: DE)
  Receive Date: 20230916
  Receipt Date: 20231005
  Transmission Date: 20240110
  Serious: Yes (Other)
  Sender: FDA-Public Use
  Company Number: DE-002147023-NVSC2023DE180795

PATIENT
  Sex: Female

DRUGS (14)
  1. FULVESTRANT [Suspect]
     Active Substance: FULVESTRANT
     Indication: Hormone receptor negative HER2 positive breast cancer
     Dosage: UNK
     Route: 065
     Dates: start: 20230523
  2. LETROZOLE [Suspect]
     Active Substance: LETROZOLE
     Indication: Hormone receptor positive HER2 negative breast cancer
     Dosage: 2.5 MILLIGRAM, ONCE A DAY
     Route: 065
     Dates: start: 20190913, end: 20191215
  3. LETROZOLE [Suspect]
     Active Substance: LETROZOLE
     Indication: Breast cancer metastatic
     Dosage: 2.5 MILLIGRAM, ONCE A DAY
     Route: 048
     Dates: start: 20191216
  4. DENOSUMAB [Suspect]
     Active Substance: DENOSUMAB
     Indication: Hormone receptor negative HER2 positive breast cancer
     Dosage: UNK (QMO) EVERY MONTH
     Route: 065
  5. KISQALI [Suspect]
     Active Substance: RIBOCICLIB
     Indication: Hormone receptor positive HER2 negative breast cancer
     Dosage: 200 MILLIGRAM, ONCE A DAY ( (SCHEMA 21 DAYS INTAKE, 7 DAYS PAUSE))`
     Route: 048
     Dates: start: 20210630, end: 20230523
  6. KISQALI [Suspect]
     Active Substance: RIBOCICLIB
     Dosage: 600 MILLIGRAM, ONCE A DAY  (SCHEMA 21 DAYS INTAKE, 7 DAYS PAUSE)
     Route: 048
     Dates: start: 20191216, end: 20200116
  7. KISQALI [Suspect]
     Active Substance: RIBOCICLIB
     Dosage: 400 MILLIGRAM, ONCE A DAY  (SCHEMA 21 DAYS INTAKE, 7 DAYS PAUSE)
     Route: 048
     Dates: start: 20200117, end: 20201022
  8. KISQALI [Suspect]
     Active Substance: RIBOCICLIB
     Dosage: 400 MILLIGRAM, ONCE A DAY  (SCHEMA 21 DAYS INTAKE, 7 DAYS PAUSE)
     Route: 048
     Dates: start: 20210304, end: 20210623
  9. KISQALI [Suspect]
     Active Substance: RIBOCICLIB
     Dosage: 400 MILLIGRAM, ONCE A DAY  (SCHEMA 21 DAYS INTAKE, 7 DAYS PAUSE)
     Route: 048
     Dates: start: 20201107, end: 20210219
  10. KISQALI [Suspect]
     Active Substance: RIBOCICLIB
     Dosage: UNK , ONCE A DAY
     Route: 065
     Dates: start: 20230524
  11. KISQALI [Suspect]
     Active Substance: RIBOCICLIB
     Dosage: UNK, ONCE A DAY
     Route: 065
     Dates: start: 20201023, end: 20201106
  12. KISQALI [Suspect]
     Active Substance: RIBOCICLIB
     Dosage: UNK, ONCE A DAY
     Route: 065
     Dates: start: 20210220, end: 20210303
  13. KISQALI [Suspect]
     Active Substance: RIBOCICLIB
     Dosage: UNK, ONCE A DAY
     Route: 065
     Dates: start: 20210624, end: 20210629
  14. KISQALI [Suspect]
     Active Substance: RIBOCICLIB
     Dosage: UNK
     Route: 065
     Dates: start: 20230523, end: 20230523

REACTIONS (1)
  - Osteonecrosis of jaw [Not Recovered/Not Resolved]

NARRATIVE: CASE EVENT DATE: 20230523
